FAERS Safety Report 5474968-9 (Version None)
Quarter: 2007Q4

REPORT INFORMATION
  Report Type: 
  Country: None (occurrence: None)
  Receive Date: 20071002
  Receipt Date: 20070918
  Transmission Date: 20080405
  Serious: Yes (Disabling, Other)
  Sender: FDA-Public Use
  Company Number: DE-PURDUE-DEU_2007_0003534

PATIENT
  Sex: Male

DRUGS (4)
  1. OXYGESIC 10 MG [Suspect]
     Indication: BACK PAIN
     Dosage: 10 MG, TID
     Route: 048
     Dates: start: 20051101, end: 20061001
  2. KATADOLON [Concomitant]
  3. SYNEUDON [Concomitant]
  4. METOPROLOL SUCCINATE [Concomitant]

REACTIONS (3)
  - DENTAL CARIES [None]
  - GINGIVITIS [None]
  - TOOTH LOSS [None]
